FAERS Safety Report 5311750-7 (Version None)
Quarter: 2007Q2

REPORT INFORMATION
  Report Type: 
  Country: None (occurrence: None)
  Receive Date: 20070426
  Receipt Date: 20070426
  Transmission Date: 20071010
  Serious: Yes (Hospitalization)
  Sender: FDA-Public Use
  Company Number: None

PATIENT
  Age: 61 Year
  Sex: Male
  Weight: 156.2 kg

DRUGS (13)
  1. WARFARIN [Suspect]
     Indication: DEEP VEIN THROMBOSIS
     Dosage: 5MG MWF, 2.5MG REST
     Dates: start: 20041110
  2. INSULIN HUMAN [Concomitant]
  3. FUROSEMIDE [Concomitant]
  4. METOPROLOL TARTRATE [Concomitant]
  5. ASPIRIN [Concomitant]
  6. CODEINE PHOSPHATE AND ACETAMINOPHEN [Concomitant]
  7. FERROUS SULFATE TAB [Concomitant]
  8. FLUNISOLIDE [Concomitant]
  9. MICONAZOLE [Concomitant]
  10. NIACIN [Concomitant]
  11. OMEPRAZOLE [Concomitant]
  12. ROSIGLITAZONE [Concomitant]
  13. WARFARIN [Concomitant]

REACTIONS (18)
  - ANAEMIA [None]
  - ANGINA PECTORIS [None]
  - CHILLS [None]
  - DIZZINESS [None]
  - DRUG TOXICITY [None]
  - DYSPNOEA EXERTIONAL [None]
  - ENDOSCOPY ABNORMAL [None]
  - FAECALOMA [None]
  - FATIGUE [None]
  - HAEMATOCRIT DECREASED [None]
  - HAEMORRHOIDS [None]
  - HYPERHIDROSIS [None]
  - INTERNATIONAL NORMALISED RATIO INCREASED [None]
  - MELAENA [None]
  - OCCULT BLOOD POSITIVE [None]
  - PYREXIA [None]
  - SLEEP APNOEA SYNDROME [None]
  - UPPER GASTROINTESTINAL HAEMORRHAGE [None]
